FAERS Safety Report 5450972-1 (Version None)
Quarter: 2007Q3

REPORT INFORMATION
  Report Type: 
  Country: None (occurrence: None)
  Receive Date: 20070913
  Receipt Date: 20070831
  Transmission Date: 20080115
  Serious: Yes (Death, Life-Threatening, Disabling, Other)
  Sender: FDA-Public Use
  Company Number: CA-SOLVAY-00307033316

PATIENT
  Age: 757 Month
  Sex: Female

DRUGS (7)
  1. MARINOL [Suspect]
     Indication: HYPOGEUSIA
     Dosage: DAILY DOSE: 5 MILLIGRAM(S)
     Route: 048
     Dates: start: 20070709, end: 20070716
  2. VENLAFAXINE HCL [Concomitant]
     Indication: DEPRESSION
     Dosage: DAILY DOSE: 225 MILLIGRAM(S)
     Route: 048
     Dates: end: 20070701
  3. ENOXAPARIN SODIUM [Concomitant]
     Indication: THROMBOSIS
     Dosage: DAILY DOSE: 90 MILLIGRAM(S)
     Route: 058
     Dates: end: 20070701
  4. LEVOFLOXACIN [Concomitant]
     Indication: PNEUMONIA
     Dosage: DAILY DOSE: 500 DOSAGE FORM
     Route: 048
     Dates: end: 20070701
  5. METRONIDAZOLE [Concomitant]
     Indication: PNEUMONIA
     Dosage: DAILY DOSE: 1500 MILLIGRAM(S)
     Route: 048
     Dates: end: 20070701
  6. VENTOLIN [Concomitant]
     Indication: ILL-DEFINED DISORDER
     Dosage: DAILY DOSE:  UNKNOWN
     Route: 065
  7. LEVOTHYROXINE SODIUM [Concomitant]
     Indication: HYPOTHYROIDISM
     Dosage: DAILY DOSE: 125 MICROGRAM(S)
     Route: 048
     Dates: end: 20070728

REACTIONS (6)
  - ATRIAL FIBRILLATION [None]
  - CONFUSIONAL STATE [None]
  - DYSPNOEA [None]
  - HEART RATE INCREASED [None]
  - PALPITATIONS [None]
  - RESPIRATORY FAILURE [None]
